FAERS Safety Report 9414852 (Version 2)
Quarter: 2013Q3

REPORT INFORMATION
  Report Type: Spontaneous
  Country: US (occurrence: None)
  Receive Date: 20130718
  Receipt Date: 20130827
  Transmission Date: 20140515
  Serious: Yes (Hospitalization)
  Sender: FDA-Public Use
  Company Number: SP06818

PATIENT
  Age: 72 Year
  Sex: Male

DRUGS (6)
  1. XIFAXAN [Suspect]
     Indication: HEPATIC CIRRHOSIS
     Dosage: 1100 MG (550 MG, 2 IN 1D )
     Route: 048
     Dates: start: 20130614, end: 20130625
  2. LACTULOSE [Concomitant]
  3. ASPIRIN [Concomitant]
  4. MAGNESIUM [Concomitant]
  5. RANITIDINE [Concomitant]
  6. SPIRONOLACTONE [Concomitant]

REACTIONS (5)
  - Confusional state [None]
  - Hypotension [None]
  - Dehydration [None]
  - Hepatic enzyme abnormal [None]
  - Renal disorder [None]
